FAERS Safety Report 7424488-7 (Version None)
Quarter: 2011Q2

REPORT INFORMATION
  Report Type: 
  Country: None (occurrence: None)
  Receive Date: 20110419
  Receipt Date: 20110418
  Transmission Date: 20111010
  Serious: Yes (Hospitalization)
  Sender: FDA-Public Use
  Company Number: JP-PFIZER INC-2011074649

PATIENT
  Age: 60 Year
  Sex: Female

DRUGS (6)
  1. BANAN [Concomitant]
     Dosage: 200 MG, 2X/DAY
     Dates: end: 20110401
  2. SELARA [Suspect]
     Indication: HYPERTENSION
     Dosage: 50 MG, 1X/DAY
     Route: 048
     Dates: start: 20110322
  3. BUSCOPAN [Concomitant]
     Dosage: 60 MG, 3X/DAY
     Dates: end: 20110401
  4. NORVASC [Concomitant]
     Indication: HYPERTENSION
     Dosage: 5 MG, 1X/DAY
     Route: 048
  5. TAKEPRON [Concomitant]
     Dosage: 5 MG, 1X/DAY
     Route: 048
  6. XYZAL [Concomitant]
     Dosage: 5 MG, 1X/DAY
     Dates: end: 20110401

REACTIONS (1)
  - CHOLECYSTITIS [None]
